FAERS Safety Report 6526461-X (Version None)
Quarter: 2010Q1

REPORT INFORMATION
  Report Type: 
  Country: None (occurrence: None)
  Receive Date: 20100105
  Receipt Date: 20091223
  Transmission Date: 20100710
  Serious: No
  Sender: FDA-Public Use
  Company Number: US-JNJFOC-20071105764

PATIENT
  Sex: Female
  Weight: 49.9 kg

DRUGS (9)
  1. DURAGESIC-100 [Suspect]
     Indication: PAIN
     Route: 062
  2. DURAGESIC-100 [Suspect]
     Dosage: TWO 25UG/HR PATCHES
     Route: 062
  3. DURAGESIC-100 [Suspect]
     Route: 062
     Dates: start: 20091001
  4. CYMBALTA [Concomitant]
     Indication: BIPOLAR I DISORDER
     Route: 048
  5. WELLBUTRIN [Concomitant]
     Indication: BIPOLAR I DISORDER
     Route: 048
  6. FOSAMAX [Concomitant]
     Indication: OSTEOPOROSIS
     Route: 048
  7. MULTI-VITAMIN [Concomitant]
     Indication: VITAMIN SUPPLEMENTATION
     Route: 048
  8. MORPHINE [Concomitant]
     Indication: PAIN
     Route: 048
  9. ZYPREXA [Concomitant]
     Indication: DRUG USE FOR UNKNOWN INDICATION
     Route: 048

REACTIONS (5)
  - APPLICATION SITE PRURITUS [None]
  - DRUG ADMINISTERED AT INAPPROPRIATE SITE [None]
  - INCORRECT DOSE ADMINISTERED [None]
  - PAIN [None]
  - WRONG TECHNIQUE IN DRUG USAGE PROCESS [None]
